FAERS Safety Report 9379715 (Version 1)
Quarter: 2013Q3

REPORT INFORMATION
  Report Type: Spontaneous
  Country: DE (occurrence: DE)
  Receive Date: 20130702
  Receipt Date: 20130702
  Transmission Date: 20140515
  Serious: Yes (Death, Congenital Anomaly, Other)
  Sender: FDA-Public Use
  Company Number: DE-PFIZER INC-2013189387

PATIENT
  Sex: Male
  Weight: 1.5 kg

DRUGS (8)
  1. CISPLATIN [Suspect]
     Indication: TESTIS CANCER
     Dosage: UNTIL 7 MONTHS PRIOR TO CONCEPTION
     Route: 050
     Dates: start: 201102, end: 201104
  2. BISO ^LICH^ [Suspect]
     Indication: HYPERTENSION
     Dosage: UNTIL 6 GESTATIONAL WEEK
     Route: 064
  3. BLEOMYCIN [Suspect]
     Indication: TESTIS CANCER
     Dosage: UNTIL 7 MONTHS PRIOR TO CONCEPTION
     Route: 050
     Dates: start: 201102, end: 201104
  4. ETOPOSIDE [Suspect]
     Indication: TESTIS CANCER
     Dosage: UNTIL 7 MONTHS PRIOR TO CONCEPTION
     Route: 050
     Dates: start: 201102, end: 201104
  5. SALMON OIL [Concomitant]
     Indication: NUTRITIONAL SUPPLEMENTATION
     Dosage: 5 - 6 GESTATIONAL WEEKS
     Route: 064
  6. METOPROLOL [Concomitant]
     Indication: HYPERTENSION
     Dosage: 7 - 11 GESTATIONAL WEEKS
     Route: 064
  7. L-THYROXIN [Concomitant]
     Indication: HYPOTHYROIDISM
     Dosage: 112 UG/24H THROUGHOUT PREGNANCY
     Route: 064
     Dates: start: 20111122, end: 20120722
  8. CENTRUM [Concomitant]
     Indication: PROPHYLAXIS OF NEURAL TUBE DEFECT
     Dosage: 0.4 MG/24H, UNK
     Route: 064
     Dates: start: 20111215, end: 20120430

REACTIONS (8)
  - Exposure via father [Fatal]
  - Maternal exposure during pregnancy [Fatal]
  - Sirenomelia [Fatal]
  - Renal aplasia [Fatal]
  - Pulmonary haemorrhage [Fatal]
  - Premature baby [Unknown]
  - Renal dysplasia [Not Recovered/Not Resolved]
  - Congenital large intestinal atresia [Not Recovered/Not Resolved]
